FAERS Safety Report 7170358-1 (Version None)
Quarter: 2010Q4

REPORT INFORMATION
  Report Type: 
  Country: None (occurrence: None)
  Receive Date: 20101217
  Receipt Date: 20101206
  Transmission Date: 20110411
  Serious: Yes (Life-Threatening, Hospitalization, Other)
  Sender: FDA-Public Use
  Company Number: DE-ROCHE-738773

PATIENT
  Sex: Male
  Weight: 68 kg

DRUGS (3)
  1. PEGASYS [Suspect]
     Indication: HEPATITIS C
     Dosage: TREATMENT FOR APPROX. 3 MONTHS
     Route: 058
     Dates: start: 20100715, end: 20101027
  2. COPEGUS [Suspect]
     Indication: HEPATITIS C
     Route: 048
     Dates: start: 20100715, end: 20101027
  3. CIPROFLOXACIN [Concomitant]
     Indication: CHOLECYSTITIS
     Route: 048
     Dates: start: 20100920, end: 20100925

REACTIONS (10)
  - ANAEMIA MACROCYTIC [None]
  - ASCITES [None]
  - DECREASED APPETITE [None]
  - FATIGUE [None]
  - GENERAL PHYSICAL HEALTH DETERIORATION [None]
  - HEPATIC CIRRHOSIS [None]
  - PORTAL HYPERTENSIVE GASTROPATHY [None]
  - SPLENOMEGALY [None]
  - THROMBOCYTOPENIA [None]
  - VARICES OESOPHAGEAL [None]
